FAERS Safety Report 8196192-1 (Version None)
Quarter: 2012Q1

REPORT INFORMATION
  Report Type: 
  Country: None (occurrence: None)
  Receive Date: 20120306
  Receipt Date: 20120228
  Transmission Date: 20120608
  Serious: Yes (Death)
  Sender: FDA-Public Use
  Company Number: MY-1190675

PATIENT
  Age: 28 Day
  Sex: Female
  Weight: 1.2 kg

DRUGS (5)
  1. URSODIOL [Concomitant]
  2. PHENYLEPHRINE HCL [Suspect]
     Indication: RETINOPATHY OF PREMATURITY
     Dosage: (1 GTT BEFPRE PROCEDURE OPHTHALMIC)
     Route: 047
     Dates: start: 20110117, end: 20110117
  3. MYDRIACYL [Suspect]
     Indication: RETINOPATHY OF PREMATURITY
     Dosage: (1 GTT BEFORE PROCEDURE OPHTHALMIC)
     Route: 047
     Dates: start: 20110117, end: 20110117
  4. METOCLOPRAMIDE [Concomitant]
  5. SODIUM PHOSPHATE [Concomitant]

REACTIONS (5)
  - PNEUMOPERITONEUM [None]
  - ASCITES [None]
  - INTESTINAL DILATATION [None]
  - INFECTIOUS PERITONITIS [None]
  - NECROTISING COLITIS [None]
